FAERS Safety Report 13508067 (Version 2)
Quarter: 2017Q2

REPORT INFORMATION
  Report Type: Report from Study
  Country: FR (occurrence: FR)
  Receive Date: 20170503
  Receipt Date: 20170602
  Transmission Date: 20170830
  Serious: Yes (Death)
  Sender: FDA-Public Use
  Company Number: FR-ROCHE-1909083

PATIENT
  Age: 68 Year
  Sex: Male
  Weight: 79 kg

DRUGS (10)
  1. TRAMADOL. [Concomitant]
     Active Substance: TRAMADOL
  2. ATEZOLIZUMAB [Suspect]
     Active Substance: ATEZOLIZUMAB
     Indication: RENAL CELL CARCINOMA
     Dosage: INJECTION
     Route: 042
     Dates: start: 20170307, end: 20170307
  3. JANUMET [Concomitant]
     Active Substance: METFORMIN HYDROCHLORIDE\SITAGLIPTIN PHOSPHATE
     Indication: TYPE 2 DIABETES MELLITUS
     Dosage: STARTED FOR YEARS
     Route: 048
  4. TEMERIT [Concomitant]
     Active Substance: NEBIVOLOL
     Dosage: 5MG/25MG
     Route: 048
     Dates: start: 201612
  5. LOVENOX [Concomitant]
     Active Substance: ENOXAPARIN SODIUM
     Dosage: 4000IU/0.4ML
     Route: 065
  6. PARACETAMOL [Concomitant]
     Active Substance: ACETAMINOPHEN
  7. APROVEL [Concomitant]
     Active Substance: IRBESARTAN
     Indication: HYPERTENSION
     Route: 048
     Dates: start: 201612
  8. OXYGEN. [Concomitant]
     Active Substance: OXYGEN
  9. LOXEN LP [Concomitant]
     Active Substance: NICARDIPINE
     Indication: HYPERTENSION
     Route: 048
     Dates: start: 201612
  10. KARDEGIC [Concomitant]
     Active Substance: ASPIRIN LYSINE
     Indication: TRANSIENT ISCHAEMIC ATTACK
     Dosage: 75
     Route: 048
     Dates: start: 20161125

REACTIONS (2)
  - Pulmonary embolism [Fatal]
  - Dyspnoea [Fatal]

NARRATIVE: CASE EVENT DATE: 20170308
